FAERS Safety Report 17982570 (Version 1)
Quarter: 2020Q3

REPORT INFORMATION
  Report Type: Spontaneous
  Country: MY (occurrence: MY)
  Receive Date: 20200706
  Receipt Date: 20200706
  Transmission Date: 20201103
  Serious: Yes (Other)
  Sender: FDA-Public Use
  Company Number: MY-ROCHE-2635893

PATIENT
  Sex: Male
  Weight: 66 kg

DRUGS (1)
  1. ESBRIET [Suspect]
     Active Substance: PIRFENIDONE
     Indication: IDIOPATHIC PULMONARY FIBROSIS
     Route: 065

REACTIONS (3)
  - Body temperature increased [Unknown]
  - Acute pulmonary oedema [Unknown]
  - Dyspnoea [Unknown]
